FAERS Safety Report 8801163 (Version 1)
Quarter: 2012Q4

REPORT INFORMATION
  Report Type: 
  Country: JP (occurrence: JP)
  Receive Date: 20120921
  Receipt Date: 20120921
  Transmission Date: 20130627
  Serious: Yes (Other)
  Sender: FDA-Public Use
  Company Number: JP-ASTRAZENECA-2012SE71826

PATIENT
  Age: 64 Year
  Sex: Male

DRUGS (3)
  1. DIPRIVAN [Suspect]
     Route: 042
  2. FENTANYL [Concomitant]
  3. VECURONIUM BROMIDE [Concomitant]
     Indication: MUSCLE RELAXANT THERAPY

REACTIONS (1)
  - Neuroleptic malignant syndrome [Recovering/Resolving]
